FAERS Safety Report 9531953 (Version 2)
Quarter: 2013Q3

REPORT INFORMATION
  Report Type: Spontaneous
  Country: SE (occurrence: SE)
  Receive Date: 20130918
  Receipt Date: 20130918
  Transmission Date: 20140515
  Serious: Yes (Hospitalization)
  Sender: FDA-Public Use
  Company Number: CHNY2013SE001852

PATIENT
  Age: 42 Year
  Sex: Male

DRUGS (1)
  1. NICOTINELL GUM [Suspect]
     Dosage: UNK, UNK

REACTIONS (4)
  - Oral herpes [Unknown]
  - Plicated tongue [Unknown]
  - Toothache [Unknown]
  - Incorrect drug administration duration [Unknown]
